FAERS Safety Report 20406894 (Version 1)
Quarter: 2022Q1

REPORT INFORMATION
  Report Type: Spontaneous
  Country: US (occurrence: None)
  Receive Date: 20220131
  Receipt Date: 20220131
  Transmission Date: 20220424
  Serious: Yes (Hospitalization)
  Sender: FDA-Public Use
  Company Number: None

PATIENT
  Sex: Female

DRUGS (8)
  1. NIVESTYM [Suspect]
     Active Substance: FILGRASTIM-AAFI
     Indication: Raynaud^s phenomenon
     Dosage: FREQUENCY : DAILY;  FOR 10 DAYS?
     Route: 058
     Dates: start: 20211029
  2. NIVESTYM [Suspect]
     Active Substance: FILGRASTIM-AAFI
     Indication: Peripheral vascular disorder
  3. NIVESTYM [Suspect]
     Active Substance: FILGRASTIM-AAFI
     Indication: Scleroderma
  4. NIVESTYM [Suspect]
     Active Substance: FILGRASTIM-AAFI
     Indication: Stem cell transplant
  5. NIVESTYM [Suspect]
     Active Substance: FILGRASTIM-AAFI
     Indication: Raynaud^s phenomenon
     Dosage: FREQUENCY : DAILY;?
     Route: 058
     Dates: start: 20211029
  6. NIVESTYM [Suspect]
     Active Substance: FILGRASTIM-AAFI
     Indication: Peripheral vascular disorder
  7. NIVESTYM [Suspect]
     Active Substance: FILGRASTIM-AAFI
     Indication: Scleroderma
  8. NIVESTYM [Suspect]
     Active Substance: FILGRASTIM-AAFI
     Indication: Stem cell transplant

REACTIONS (1)
  - Therapy interrupted [None]
